FAERS Safety Report 6202485-7 (Version None)
Quarter: 2009Q2

REPORT INFORMATION
  Report Type: 
  Country: None (occurrence: None)
  Receive Date: 20090521
  Receipt Date: 20090521
  Transmission Date: 20091009
  Serious: Yes (Hospitalization)
  Sender: FDA-Public Use
  Company Number: None

PATIENT
  Sex: Female
  Weight: 67.3 kg

DRUGS (16)
  1. DIGOXIN [Suspect]
     Indication: CARDIAC FAILURE CONGESTIVE
     Dosage: 0.25MG DAILY ORAL
     Route: 048
     Dates: start: 20080201
  2. NORVASC [Concomitant]
  3. COREG [Concomitant]
  4. PREMARIN [Concomitant]
  5. TRICOR [Concomitant]
  6. ALLEGRA [Concomitant]
  7. LASIX [Concomitant]
  8. LACTULOSE [Concomitant]
  9. METFORMIN HCL [Concomitant]
  10. NIASPAN [Concomitant]
  11. OMEPRAZOLE [Concomitant]
  12. LYRICA [Concomitant]
  13. QUINAPRIL [Concomitant]
  14. ROPINIROLE [Concomitant]
  15. SERTRALINE HCL [Concomitant]
  16. TOPAMAX [Concomitant]

REACTIONS (6)
  - ANOREXIA [None]
  - BRADYCARDIA [None]
  - DYSPNOEA [None]
  - FATIGUE [None]
  - NAUSEA [None]
  - PALPITATIONS [None]
